FAERS Safety Report 9461550 (Version 2)
Quarter: 2018Q3

REPORT INFORMATION
  Report Type: Spontaneous
  Country: US (occurrence: US)
  Receive Date: 20130816
  Receipt Date: 20180801
  Transmission Date: 20181010
  Serious: Yes (Hospitalization, Other)
  Sender: FDA-Public Use
  Company Number: US-BRISTOL-MYERS SQUIBB COMPANY-19186865

PATIENT
  Age: 56 Year
  Sex: Male
  Weight: 132 kg

DRUGS (17)
  1. ASPIRIN                            /00002701/ [Suspect]
     Active Substance: ASPIRIN
     Indication: PROPHYLAXIS
     Dosage: 81 MG, UNK
     Route: 065
  2. ZAROXOLYN [Concomitant]
     Active Substance: METOLAZONE
     Indication: PULMONARY ARTERIAL HYPERTENSION
     Dosage: 2.5 MG, UNK
     Route: 065
     Dates: start: 20120508
  3. NEURONTIN [Concomitant]
     Active Substance: GABAPENTIN
     Indication: NEUROPATHY PERIPHERAL
     Dosage: 300 MG, UNK
     Route: 065
     Dates: start: 20111102
  4. COUMADIN [Suspect]
     Active Substance: WARFARIN SODIUM
     Indication: PULMONARY EMBOLISM
     Dosage: ALSO TAKEN IN 1 MG,10 MG DOSES; 14?JUN?2013.
     Route: 065
  5. ZAROXOLYN [Concomitant]
     Active Substance: METOLAZONE
     Indication: FLUID RETENTION
     Route: 065
  6. I RON [Concomitant]
     Active Substance: FERROUS FUMARATE
     Indication: ANAEMIA
     Dosage: 325 MG, UNK
     Route: 065
     Dates: start: 20120509
  7. CYMBALTA [Concomitant]
     Active Substance: DULOXETINE HYDROCHLORIDE
     Indication: NEUROPATHY PERIPHERAL
     Route: 065
  8. TREPROSTINIL [Concomitant]
     Active Substance: TREPROSTINIL
     Indication: PULMONARY ARTERIAL HYPERTENSION
     Dosage: 13JUN13?ONG  19JUN13?ONG  INTRP ON 7MAY13  20 MG(10 MG, 2 IN 1 DAY)
     Route: 048
     Dates: start: 20101018
  9. NOVOLOG [Concomitant]
     Active Substance: INSULIN ASPART
     Indication: DIABETES MELLITUS
     Dosage: 1DF:100UNITS/ML
     Route: 065
     Dates: start: 20120329
  10. LETAIRIS [Concomitant]
     Active Substance: AMBRISENTAN
     Indication: PULMONARY ARTERIAL HYPERTENSION
     Dosage: 5 MG, UNK
     Route: 065
     Dates: start: 20121023
  11. BUMEX [Concomitant]
     Active Substance: BUMETANIDE
     Indication: PULMONARY ARTERIAL HYPERTENSION
     Dosage: 1 MG, UNK
     Route: 065
     Dates: start: 20121218
  12. LANTUS [Concomitant]
     Active Substance: INSULIN GLARGINE
     Indication: DIABETES MELLITUS
     Dosage: 1DF:100UNIT/ML
     Route: 065
     Dates: start: 20120329
  13. CYMBALTA [Concomitant]
     Active Substance: DULOXETINE HYDROCHLORIDE
     Indication: PAIN IN EXTREMITY
     Dosage: 60 MG, UNK
     Route: 065
     Dates: start: 20111013
  14. TADALAFIL [Concomitant]
     Active Substance: TADALAFIL
     Indication: PULMONARY ARTERIAL HYPERTENSION
     Dosage: 20 MG, UNK
     Route: 065
     Dates: start: 20110926
  15. BUMEX [Concomitant]
     Active Substance: BUMETANIDE
     Indication: FLUID RETENTION
     Route: 065
  16. ROXICODONE [Concomitant]
     Active Substance: OXYCODONE HYDROCHLORIDE
     Indication: PAIN IN EXTREMITY
     Dosage: 10 MG, UNK
     Route: 065
     Dates: start: 20111023
  17. ROXICODONE [Concomitant]
     Active Substance: OXYCODONE HYDROCHLORIDE
     Indication: NEUROPATHY PERIPHERAL
     Route: 065

REACTIONS (9)
  - Cardiac failure congestive [Recovered/Resolved]
  - Acute kidney injury [Recovered/Resolved]
  - Pneumonia [Unknown]
  - Nausea [Unknown]
  - Dyspnoea [Unknown]
  - Dehydration [Unknown]
  - Weight increased [Unknown]
  - Back pain [Unknown]
  - Gastrointestinal haemorrhage [Recovered/Resolved]

NARRATIVE: CASE EVENT DATE: 20110118
